FAERS Safety Report 19327593 (Version 1)
Quarter: 2021Q2

REPORT INFORMATION
  Report Type: Report from Study
  Country: US (occurrence: US)
  Receive Date: 20210528
  Receipt Date: 20210528
  Transmission Date: 20210717
  Serious: Yes (Other)
  Sender: FDA-Public Use
  Company Number: US-VANDA PHARMACEUTICALS, INC-2021TASUS005001

PATIENT
  Sex: Female
  Weight: 74.7 kg

DRUGS (1)
  1. HETLIOZ [Suspect]
     Active Substance: TASIMELTEON
     Indication: NON-24-HOUR SLEEP-WAKE DISORDER
     Dosage: 20 MILLIGRAM, QD (SME TIME EVERY NIGHT WITHOUT FOOD)
     Route: 048

REACTIONS (1)
  - Diverticulitis [Unknown]
